FAERS Safety Report 17451419 (Version 10)
Quarter: 2025Q3

REPORT INFORMATION
  Report Type: Spontaneous
  Country: US (occurrence: US)
  Receive Date: 20200224
  Receipt Date: 20250926
  Transmission Date: 20251020
  Serious: No
  Sender: PFIZER
  Company Number: US-PFIZER INC-2020067724

PATIENT
  Age: 70 Year
  Sex: Male

DRUGS (2)
  1. XELJANZ XR [Suspect]
     Active Substance: TOFACITINIB CITRATE
     Indication: Rheumatoid arthritis
     Dosage: 11 MG, 1X/DAY
     Route: 048
     Dates: start: 2019
  2. XELJANZ XR [Suspect]
     Active Substance: TOFACITINIB CITRATE
     Route: 048

REACTIONS (5)
  - Pain in extremity [Unknown]
  - Feeling abnormal [Unknown]
  - Expired product administered [Unknown]
  - Intentional product misuse [Unknown]
  - Wrong technique in product usage process [Unknown]

NARRATIVE: CASE EVENT DATE: 20200101
